FAERS Safety Report 8493184-X (Version None)
Quarter: 2012Q3

REPORT INFORMATION
  Report Type: 
  Country: None (occurrence: None)
  Receive Date: 20120706
  Receipt Date: 20120626
  Transmission Date: 20120928
  Serious: Yes (Other)
  Sender: FDA-Public Use
  Company Number: CA-JNJFOC-20120516912

PATIENT
  Sex: Female
  Weight: 62 kg

DRUGS (12)
  1. QUESTRAN [Concomitant]
     Dosage: OCCASIONALLY
     Route: 065
  2. TRAZODONE HCL [Concomitant]
     Route: 065
  3. IMODIUM [Concomitant]
     Dosage: PRN
     Route: 065
  4. REMICADE [Suspect]
     Indication: CROHN'S DISEASE
     Route: 042
     Dates: start: 20070613
  5. CALCIUM [Concomitant]
     Route: 065
  6. OXYCODONE HCL AND ACETAMINOPHEN [Concomitant]
     Route: 065
  7. CITALOPRAM HYDROBROMIDE [Concomitant]
     Route: 065
  8. SYNTHROID [Concomitant]
     Route: 065
  9. VITAMIN D [Concomitant]
     Route: 065
  10. CELEXA [Concomitant]
     Route: 065
  11. CES [Concomitant]
     Route: 065
  12. NITROGLYCERIN SPRAY [Concomitant]
     Route: 065

REACTIONS (7)
  - ABDOMINAL PAIN UPPER [None]
  - HEPATIC STEATOSIS [None]
  - HYPOKALAEMIA [None]
  - URINARY TRACT INFECTION [None]
  - BLOOD MAGNESIUM DECREASED [None]
  - LIPASE INCREASED [None]
  - HYPOCALCAEMIA [None]
